FAERS Safety Report 8584012-2 (Version None)
Quarter: 2012Q3

REPORT INFORMATION
  Report Type: 
  Country: None (occurrence: None)
  Receive Date: 20120810
  Receipt Date: 20120730
  Transmission Date: 20120928
  Serious: No
  Sender: FDA-Public Use
  Company Number: US-009507513-1208USA000044

PATIENT

DRUGS (2)
  1. NEXPLANON [Suspect]
     Indication: CONTRACEPTION
     Dosage: 1 UNK, UNK
  2. NEXPLANON [Suspect]
     Dosage: 68 MG, UNK
     Route: 059

REACTIONS (2)
  - DEVICE DIFFICULT TO USE [None]
  - NO ADVERSE EVENT [None]
